FAERS Safety Report 18607694 (Version 2)
Quarter: 2020Q4

REPORT INFORMATION
  Report Type: Spontaneous
  Country: US (occurrence: US)
  Receive Date: 20201212
  Receipt Date: 20201226
  Transmission Date: 20210114
  Serious: No
  Sender: FDA-Public Use
  Company Number: NVSC2020US330410

PATIENT
  Sex: Female

DRUGS (1)
  1. MAYZENT [Suspect]
     Active Substance: SIPONIMOD
     Indication: MULTIPLE SCLEROSIS
     Dosage: 2 MG, QD
     Route: 048

REACTIONS (5)
  - Abdominal pain upper [Recovering/Resolving]
  - Gait disturbance [Unknown]
  - Asthenia [Unknown]
  - Feeling abnormal [Unknown]
  - Headache [Recovering/Resolving]
